FAERS Safety Report 25351469 (Version 1)
Quarter: 2025Q2

REPORT INFORMATION
  Report Type: Other
  Country: FI (occurrence: FI)
  Receive Date: 20250523
  Receipt Date: 20250523
  Transmission Date: 20250716
  Serious: Yes (Other)
  Sender: ESJAY PHARMA
  Company Number: FI-ESJAY PHARMA-000635

PATIENT
  Age: 26 Year
  Sex: Female

DRUGS (1)
  1. METHYLPHENIDATE HYDROCHLORIDE [Suspect]
     Active Substance: METHYLPHENIDATE HYDROCHLORIDE
     Indication: Attention deficit hyperactivity disorder

REACTIONS (17)
  - Histiocytosis [Recovering/Resolving]
  - Retinopathy [Recovering/Resolving]
  - Macular cyst [Recovering/Resolving]
  - Pericardial effusion [Recovering/Resolving]
  - Tricuspid valve incompetence [Recovering/Resolving]
  - Pulmonary hypertension [Recovering/Resolving]
  - Chronic hepatitis C [Recovering/Resolving]
  - Pachymeningitis [Recovering/Resolving]
  - Amyloidosis [Recovering/Resolving]
  - Immunoglobulin G4 related disease [Recovering/Resolving]
  - Intentional product misuse [Unknown]
  - Wrong technique in product usage process [Unknown]
  - Hyperaesthesia [Recovering/Resolving]
  - Anaemia [Recovering/Resolving]
  - Memory impairment [Recovering/Resolving]
  - Executive dysfunction [Recovering/Resolving]
  - Malnutrition [Recovering/Resolving]
